FAERS Safety Report 17463605 (Version 2)
Quarter: 2020Q1

REPORT INFORMATION
  Report Type: Spontaneous
  Country: US (occurrence: US)
  Receive Date: 20200226
  Receipt Date: 20200319
  Transmission Date: 20200409
  Serious: No
  Sender: FDA-Public Use
  Company Number: US-ASTRAZENECA-2020SE18679

PATIENT
  Age: 23657 Day
  Sex: Female

DRUGS (1)
  1. BYDUREON BCISE [Suspect]
     Active Substance: EXENATIDE
     Dosage: UNKNOWN
     Route: 065

REACTIONS (7)
  - Dysphonia [Unknown]
  - Device leakage [Unknown]
  - Injection site extravasation [Unknown]
  - Oropharyngeal pain [Not Recovered/Not Resolved]
  - Injection site mass [Recovered/Resolved]
  - Product dose omission [Unknown]
  - Nasopharyngitis [Unknown]

NARRATIVE: CASE EVENT DATE: 20200114
